FAERS Safety Report 23880822 (Version 1)
Quarter: 2024Q2

REPORT INFORMATION
  Report Type: Spontaneous
  Country: IE (occurrence: IE)
  Receive Date: 20240521
  Receipt Date: 20240521
  Transmission Date: 20240716
  Serious: Yes (Hospitalization, Other)
  Sender: FDA-Public Use
  Company Number: IE-SHIRE-IE202011256

PATIENT
  Age: 44 Year
  Sex: Male

DRUGS (77)
  1. CARBAMAZEPINE [Suspect]
     Active Substance: CARBAMAZEPINE
     Indication: Product used for unknown indication
     Dosage: 400 MG, QD (200 MILLIGRAM, BID)
     Route: 050
  2. AGALSIDASE ALFA [Suspect]
     Active Substance: AGALSIDASE ALFA
     Indication: Fabry^s disease
     Dosage: 17.5 MG, Q2W
     Route: 042
  3. AGALSIDASE ALFA [Suspect]
     Active Substance: AGALSIDASE ALFA
     Dosage: 17.5 MG, Q2W
     Route: 042
  4. AGALSIDASE ALFA [Suspect]
     Active Substance: AGALSIDASE ALFA
     Dosage: 17.5 MG, Q2W
     Route: 042
  5. AGALSIDASE ALFA [Suspect]
     Active Substance: AGALSIDASE ALFA
     Dosage: 17.5 MG, Q2W
     Route: 042
  6. AGALSIDASE ALFA [Suspect]
     Active Substance: AGALSIDASE ALFA
     Dosage: 17.5 MG, Q2W
     Route: 042
  7. AGALSIDASE ALFA [Suspect]
     Active Substance: AGALSIDASE ALFA
     Dosage: 17.5 MG, Q2W
     Route: 042
     Dates: start: 20150430
  8. AGALSIDASE ALFA [Suspect]
     Active Substance: AGALSIDASE ALFA
     Dosage: 17.5 MG, Q2W
     Route: 042
     Dates: start: 20200625
  9. AGALSIDASE ALFA [Suspect]
     Active Substance: AGALSIDASE ALFA
     Dosage: 17.5 MG, Q2W
     Route: 042
  10. AGALSIDASE ALFA [Suspect]
     Active Substance: AGALSIDASE ALFA
     Dosage: 17.5 MG, Q2W
     Route: 042
  11. AGALSIDASE ALFA [Suspect]
     Active Substance: AGALSIDASE ALFA
     Dosage: 17.5 MG, Q2W
     Route: 042
  12. AGALSIDASE ALFA [Suspect]
     Active Substance: AGALSIDASE ALFA
     Dosage: 17.5 MG, Q2W
     Route: 042
     Dates: start: 20111209
  13. AGALSIDASE ALFA [Suspect]
     Active Substance: AGALSIDASE ALFA
     Dosage: 17.5 MG, Q2W
     Route: 042
  14. AGALSIDASE ALFA [Suspect]
     Active Substance: AGALSIDASE ALFA
     Dosage: 17.5 MG, Q2W
     Route: 042
  15. AGALSIDASE ALFA [Suspect]
     Active Substance: AGALSIDASE ALFA
     Dosage: 35 MG, QMO (17.5 MILLIGRAM, 2/MONTH)
     Route: 042
     Dates: start: 20211209
  16. AGALSIDASE ALFA [Suspect]
     Active Substance: AGALSIDASE ALFA
     Dosage: 17.5 MG, Q2W
     Route: 042
  17. AGALSIDASE ALFA [Suspect]
     Active Substance: AGALSIDASE ALFA
     Dosage: 17.5 MG, Q2W
     Route: 042
  18. AGALSIDASE ALFA [Suspect]
     Active Substance: AGALSIDASE ALFA
     Dosage: 17.5 MG, Q2W
     Route: 042
     Dates: start: 20211019
  19. AGALSIDASE ALFA [Suspect]
     Active Substance: AGALSIDASE ALFA
     Dosage: 17.5 MG, Q2W
     Route: 042
  20. AGALSIDASE ALFA [Suspect]
     Active Substance: AGALSIDASE ALFA
     Dosage: 17.5 MG, Q2W
     Route: 042
  21. AGALSIDASE ALFA [Suspect]
     Active Substance: AGALSIDASE ALFA
     Dosage: 17.5 MG, Q2W
     Route: 042
  22. AGALSIDASE ALFA [Suspect]
     Active Substance: AGALSIDASE ALFA
     Dosage: 17.5 MG, Q2W
     Route: 042
  23. AGALSIDASE ALFA [Suspect]
     Active Substance: AGALSIDASE ALFA
     Dosage: 17.5 MG, Q2W
     Route: 042
     Dates: start: 20150422
  24. AGALSIDASE ALFA [Suspect]
     Active Substance: AGALSIDASE ALFA
     Dosage: 17.5 MG, Q2W
     Route: 042
     Dates: start: 20200514
  25. AGALSIDASE ALFA [Suspect]
     Active Substance: AGALSIDASE ALFA
     Dosage: 17.5 MG, Q2W
     Route: 042
  26. AGALSIDASE ALFA [Suspect]
     Active Substance: AGALSIDASE ALFA
     Dosage: 17.5 MG, Q2W
     Route: 042
  27. AGALSIDASE ALFA [Suspect]
     Active Substance: AGALSIDASE ALFA
     Dosage: 17.5 MG, Q2W
     Route: 042
  28. AGALSIDASE ALFA [Suspect]
     Active Substance: AGALSIDASE ALFA
     Dosage: 17.5 MG, Q2W
     Route: 042
  29. AGALSIDASE ALFA [Suspect]
     Active Substance: AGALSIDASE ALFA
     Dosage: 17.5 MG, Q2W
     Route: 042
     Dates: start: 20200610
  30. AGALSIDASE ALFA [Suspect]
     Active Substance: AGALSIDASE ALFA
     Dosage: 17.5 MG, Q2W
     Route: 042
     Dates: start: 20200310
  31. AGALSIDASE ALFA [Suspect]
     Active Substance: AGALSIDASE ALFA
     Dosage: 17.5 MG, Q2W
     Route: 042
  32. AGALSIDASE ALFA [Suspect]
     Active Substance: AGALSIDASE ALFA
     Dosage: 17.5 MG, Q2W
     Route: 042
     Dates: start: 20200406
  33. AGALSIDASE ALFA [Suspect]
     Active Substance: AGALSIDASE ALFA
     Dosage: 17.5 MG, Q2W
     Route: 042
     Dates: start: 20200430
  34. AGALSIDASE ALFA [Suspect]
     Active Substance: AGALSIDASE ALFA
     Dosage: 17.5 MG, Q2W
     Route: 042
     Dates: start: 20200526
  35. OMEPRAZOLE [Concomitant]
     Active Substance: DONEPEZIL HYDROCHLORIDE\OMEPRAZOLE\OMEPRAZOLE MAGNESIUM
     Indication: Product used for unknown indication
     Dosage: 20 MG, QD
     Route: 050
  36. TETRALYSAL [Concomitant]
     Indication: Product used for unknown indication
     Dosage: 600 MG, QD (300 MILLIGRAM, BID)
     Route: 050
  37. CHOLECALCIFEROL [Concomitant]
     Active Substance: CHOLECALCIFEROL
     Indication: Product used for unknown indication
     Dosage: 800 IU, QD
     Route: 050
  38. PREDNISONE [Concomitant]
     Active Substance: PREDNISONE
     Indication: Product used for unknown indication
     Dosage: 10 MG, QD
     Route: 050
  39. CLOPIDOGREL BISULFATE [Concomitant]
     Active Substance: CLOPIDOGREL BISULFATE
     Indication: Product used for unknown indication
     Dosage: 75 MG, QD
     Route: 050
  40. ZOVIRAX [Concomitant]
     Active Substance: ACYCLOVIR
     Indication: Product used for unknown indication
     Dosage: 3 DOSAGE FORM, QD (1 DOSAGE FORM, TID)
     Route: 050
  41. FLUCLOXACILLIN [Concomitant]
     Active Substance: FLUCLOXACILLIN
     Indication: Product used for unknown indication
     Dosage: 500 MG, QD
     Route: 050
  42. TRIMETHOPRIM [Concomitant]
     Active Substance: TRIMETHOPRIM
     Indication: Product used for unknown indication
     Dosage: 400 MG, QD (200 MILLIGRAM, BID)
     Route: 050
  43. ASPIRIN\DIPYRIDAMOLE [Concomitant]
     Active Substance: ASPIRIN\DIPYRIDAMOLE
     Indication: Product used for unknown indication
     Dosage: 400 MG, QD (200 MILLIGRAM, BID)
     Route: 050
  44. AMITRIPTYLINE [Concomitant]
     Active Substance: AMITRIPTYLINE
     Indication: Product used for unknown indication
     Dosage: 10 MG, QD
     Route: 050
  45. HALF BETA PROGRANE [Concomitant]
     Indication: Product used for unknown indication
     Dosage: 80 MG, QOD
     Route: 050
  46. LOSEC [Concomitant]
     Active Substance: OMEPRAZOLE
     Indication: Product used for unknown indication
     Dosage: 20 MG, QD
     Route: 050
  47. AMITRIPTYLINE [Concomitant]
     Active Substance: AMITRIPTYLINE
     Indication: Product used for unknown indication
     Dosage: 10 MG, QD
     Route: 050
  48. AMITRIPTYLINE [Concomitant]
     Active Substance: AMITRIPTYLINE
     Dosage: 25 MG, QD
     Route: 050
  49. AMITRIPTYLINE [Concomitant]
     Active Substance: AMITRIPTYLINE
     Dosage: 25 MG, QD
     Route: 050
  50. AMITRIPTYLINE [Concomitant]
     Active Substance: AMITRIPTYLINE
     Dosage: 10 MG, QD
     Route: 050
  51. AMITRIPTYLINE [Concomitant]
     Active Substance: AMITRIPTYLINE
     Dosage: 75 MG, QD
     Route: 050
  52. AMITRIPTYLINE [Concomitant]
     Active Substance: AMITRIPTYLINE
     Dosage: 25 MG, QD
     Route: 050
  53. ISOTRETINOIN [Concomitant]
     Active Substance: ISOTRETINOIN
     Indication: Product used for unknown indication
     Dosage: 60 MG, QD (30 MILLIGRAM, BID)
     Route: 050
  54. VOLTAROL [Concomitant]
     Active Substance: DICLOFENAC SODIUM
     Indication: Muscle injury
     Dosage: 2 MG, QD (1 MILLIGRAM, BID)
     Route: 050
  55. GABAPENTIN [Concomitant]
     Active Substance: GABAPENTIN
     Indication: Product used for unknown indication
     Dosage: 600 MG, QD (300 MILLIGRAM, BID)
     Route: 050
  56. FUROSEMIDE [Concomitant]
     Active Substance: FUROSEMIDE
     Indication: Product used for unknown indication
     Dosage: 80 MG, QD (40 MILLIGRAM, BID)
     Route: 050
  57. ROSUVASTATIN [Concomitant]
     Active Substance: ROSUVASTATIN
     Indication: Product used for unknown indication
     Dosage: 40 MG, QD
     Route: 050
  58. PINNAMOX [Concomitant]
     Indication: Product used for unknown indication
     Dosage: 1500 MG, QD (500 MILLIGRAM, TID)
     Route: 050
  59. PROGRAF [Concomitant]
     Active Substance: TACROLIMUS
     Indication: Product used for unknown indication
     Dosage: 5 MG, QD (2.5 MILLIGRAM, BID)
     Route: 050
  60. CALVAPEN [Concomitant]
     Indication: Product used for unknown indication
     Dosage: 1998 MG, QD (666 MILLIGRAM, TID)
     Route: 050
  61. HYDROCORTISONE [Concomitant]
     Active Substance: HYDROCORTISONE
     Indication: Premedication
     Dosage: 200 MG, QMO (100 MILLIGRAM, 2/MONTH)
     Route: 050
  62. HYDROCORTISONE [Concomitant]
     Active Substance: HYDROCORTISONE
     Dosage: 100 MG, Q2W
     Route: 050
  63. HYDROCORTISONE [Concomitant]
     Active Substance: HYDROCORTISONE
     Dosage: 100 MG, Q2W
     Route: 042
  64. ACETAMINOPHEN [Concomitant]
     Active Substance: ACETAMINOPHEN
     Indication: Headache
     Dosage: 500 MG
     Route: 050
  65. CHLORPHENIRAMINE MALEATE [Concomitant]
     Active Substance: CHLORPHENIRAMINE MALEATE
     Indication: Premedication
     Dosage: 4 MG, Q2W
     Route: 050
  66. ASPIRIN [Concomitant]
     Active Substance: ASPIRIN
     Indication: Product used for unknown indication
     Dosage: 75 MG, QD
     Route: 050
  67. LESCOL [Concomitant]
     Active Substance: FLUVASTATIN SODIUM
     Indication: Product used for unknown indication
     Dosage: 40 MG, QD
     Route: 050
  68. CELLCEPT [Concomitant]
     Active Substance: MYCOPHENOLATE MOFETIL
     Indication: Product used for unknown indication
     Dosage: 1000 MG, QD (500 MILLIGRAM, BID)
     Route: 050
  69. LYMECYCLINE [Concomitant]
     Active Substance: LYMECYCLINE
     Indication: Product used for unknown indication
     Dosage: 600 MG, QD (300 MILLIGRAM, BID)
     Route: 050
  70. LYMECYCLINE [Concomitant]
     Active Substance: LYMECYCLINE
     Dosage: 60 MG, QD (30 MILLIGRAM, BID)
     Route: 050
  71. PERINDOPRIL [Concomitant]
     Active Substance: PERINDOPRIL
     Indication: Product used for unknown indication
     Dosage: 2.5 MG, QD
     Route: 050
  72. PREDNISOLONE [Concomitant]
     Active Substance: PREDNISOLONE
     Indication: Product used for unknown indication
     Dosage: 30 MG, QD (15 MILLIGRAM, BID)
     Route: 050
  73. PREDNISOLONE [Concomitant]
     Active Substance: PREDNISOLONE
     Dosage: 10 MG, QD
     Route: 050
  74. PREDNISOLONE [Concomitant]
     Active Substance: PREDNISOLONE
     Dosage: 16 MG, QD
     Route: 065
  75. PREDNISOLONE [Concomitant]
     Active Substance: PREDNISOLONE
     Dosage: 16 MG, QD
     Route: 050
  76. PREDNISOLONE [Concomitant]
     Active Substance: PREDNISOLONE
     Dosage: 30 MG, QD (15 MILLIGRAM, BID)
     Route: 050
  77. PREDNISOLONE [Concomitant]
     Active Substance: PREDNISOLONE
     Dosage: 30 MG, QD (15 MILLIGRAM, BID)
     Route: 050

REACTIONS (29)
  - Spinal fracture [Recovering/Resolving]
  - Blood creatinine increased [Recovering/Resolving]
  - Road traffic accident [Not Recovered/Not Resolved]
  - Myositis [Recovering/Resolving]
  - Headache [Recovering/Resolving]
  - Malaise [Recovered/Resolved]
  - Memory impairment [Not Recovered/Not Resolved]
  - Vomiting [Not Recovered/Not Resolved]
  - Herpes zoster [Recovering/Resolving]
  - Dizziness [Not Recovered/Not Resolved]
  - Upper respiratory tract infection [Recovered/Resolved]
  - Feeling cold [Not Recovered/Not Resolved]
  - Back pain [Not Recovered/Not Resolved]
  - Depressed mood [Not Recovered/Not Resolved]
  - Tooth abscess [Not Recovered/Not Resolved]
  - COVID-19 [Recovering/Resolving]
  - Productive cough [Not Recovered/Not Resolved]
  - Skin laceration [Recovered/Resolved]
  - Poor venous access [Unknown]
  - Influenza like illness [Not Recovered/Not Resolved]
  - Nausea [Not Recovered/Not Resolved]
  - Fatigue [Recovering/Resolving]
  - Oropharyngeal pain [Recovering/Resolving]
  - Peripheral swelling [Recovering/Resolving]
  - Body temperature increased [Recovering/Resolving]
  - Cough [Not Recovered/Not Resolved]
  - Ear infection [Recovered/Resolved]
  - Product dose omission issue [Recovering/Resolving]
  - Inappropriate schedule of product administration [Recovered/Resolved]

NARRATIVE: CASE EVENT DATE: 20231026
